FAERS Safety Report 9964395 (Version 1)
Quarter: 2014Q1

REPORT INFORMATION
  Report Type: Report from Study
  Country: US (occurrence: US)
  Receive Date: 20140305
  Receipt Date: 20140305
  Transmission Date: 20141002
  Serious: Yes (Hospitalization)
  Sender: FDA-Public Use
  Company Number: US-GLAXOSMITHKLINE-B0973701A

PATIENT
  Age: 43 Year
  Sex: Female
  Weight: 92.9 kg

DRUGS (4)
  1. ZANAMIVIR [Suspect]
     Indication: H1N1 INFLUENZA
     Route: 042
     Dates: start: 20140123, end: 20140128
  2. VORICONAZOLE [Suspect]
     Indication: ANTIFUNGAL PROPHYLAXIS
     Route: 042
     Dates: start: 20140127, end: 20140201
  3. LINEZOLID [Suspect]
     Indication: PNEUMONIA
     Dosage: 600MG TWICE PER DAY
     Route: 042
     Dates: start: 20140126, end: 20140201
  4. MEROPENEM [Concomitant]
     Indication: PNEUMONIA
     Dosage: 500MG TWICE PER DAY
     Route: 042
     Dates: start: 20140114, end: 20140201

REACTIONS (2)
  - Aspartate aminotransferase increased [Recovering/Resolving]
  - Alanine aminotransferase increased [Recovering/Resolving]
